FAERS Safety Report 24019531 (Version 1)
Quarter: 2024Q2

REPORT INFORMATION
  Report Type: Spontaneous
  Country: US (occurrence: None)
  Receive Date: 20240626
  Receipt Date: 20240626
  Transmission Date: 20240716
  Serious: Yes (Other)
  Sender: FDA-Public Use
  Company Number: None

PATIENT
  Age: 80 Year
  Sex: Male
  Weight: 77 kg

DRUGS (1)
  1. REVEFENACIN [Suspect]
     Active Substance: REVEFENACIN
     Dosage: OTHER FREQUENCY : ONCE;?
     Route: 055

REACTIONS (4)
  - Delirium [None]
  - Hepatic function abnormal [None]
  - Liver function test increased [None]
  - Hypoglycaemia [None]

NARRATIVE: CASE EVENT DATE: 20240421
